FAERS Safety Report 7222916-3 (Version None)
Quarter: 2011Q1

REPORT INFORMATION
  Report Type: 
  Country: None (occurrence: None)
  Receive Date: 20110112
  Receipt Date: 20101218
  Transmission Date: 20110831
  Serious: Yes (Hospitalization, Other)
  Sender: FDA-Public Use
  Company Number: RU-BAYER-201013008GPV

PATIENT
  Age: 25 Year
  Sex: Female

DRUGS (1)
  1. BETAFERON [Suspect]
     Indication: MULTIPLE SCLEROSIS
     Route: 058
     Dates: start: 20080326, end: 20091201

REACTIONS (3)
  - VAGINAL HAEMORRHAGE [None]
  - ASTHENIA [None]
  - PREMATURE BABY [None]
